FAERS Safety Report 14608186 (Version 1)
Quarter: 2018Q1

REPORT INFORMATION
  Report Type: Spontaneous
  Country: US (occurrence: US)
  Receive Date: 20180306
  Receipt Date: 20180306
  Transmission Date: 20180509
  Serious: Yes (Other)
  Sender: FDA-Public Use
  Company Number: None

PATIENT
  Age: 24 Year
  Sex: Male
  Weight: 67.5 kg

DRUGS (2)
  1. FLUOXETINE [Concomitant]
     Active Substance: FLUOXETINE HYDROCHLORIDE
  2. RHOFADE [Suspect]
     Active Substance: OXYMETAZOLINE HYDROCHLORIDE
     Indication: FLUSHING
     Dosage: ?          QUANTITY:30 PEA-SIZED AMOUNT;?
     Route: 061
     Dates: start: 20180301, end: 20180302

REACTIONS (6)
  - Skin tightness [None]
  - Application site discolouration [None]
  - Application site reaction [None]
  - Skin disorder [None]
  - Application site pain [None]
  - Application site rash [None]

NARRATIVE: CASE EVENT DATE: 20180301
